FAERS Safety Report 4762058-X (Version None)
Quarter: 2005Q3

REPORT INFORMATION
  Report Type: 
  Country: None (occurrence: None)
  Receive Date: 20050831
  Receipt Date: 20050725
  Transmission Date: 20060218
  Serious: No
  Sender: FDA-Public Use
  Company Number: PHEH2005US08236

PATIENT
  Age: 92 Year
  Sex: Male

DRUGS (6)
  1. ENABLEX [Suspect]
     Indication: HYPERTONIC BLADDER
     Dosage: 7.5 MG, QD,
     Dates: start: 20050716
  2. LASIX [Concomitant]
  3. ENALAPRIL MALEATE [Concomitant]
  4. NITRO PATCH (GLYCERYL TRINITRATE) [Concomitant]
  5. TYLENOL [Concomitant]
  6. ARICEPT [Concomitant]

REACTIONS (2)
  - ABDOMINAL DISTENSION [None]
  - FEELING ABNORMAL [None]
